FAERS Safety Report 11758705 (Version 1)
Quarter: 2015Q4

REPORT INFORMATION
  Report Type: Spontaneous
  Country: US (occurrence: None)
  Receive Date: 20151119
  Receipt Date: 20151119
  Transmission Date: 20160304
  Serious: No
  Sender: FDA-Public Use
  Company Number: None

PATIENT
  Age: 55 Year
  Sex: Female
  Weight: 117.03 kg

DRUGS (5)
  1. OXYCODONE 10 MG ZYDUS [Suspect]
     Active Substance: OXYCODONE
     Indication: BACK PAIN
     Dosage: 1 EVERY 3 HOURS
     Route: 048
     Dates: start: 20151115, end: 20151118
  2. SASALATE [Concomitant]
  3. OXYCODONE [Concomitant]
     Active Substance: OXYCODONE
  4. TYLENOL [Concomitant]
     Active Substance: ACETAMINOPHEN
  5. PHENERGAN [Concomitant]
     Active Substance: PROMETHAZINE HYDROCHLORIDE

REACTIONS (4)
  - Drug effect decreased [None]
  - Product substitution issue [None]
  - Headache [None]
  - Withdrawal syndrome [None]

NARRATIVE: CASE EVENT DATE: 20151117
